FAERS Safety Report 22971794 (Version 6)
Quarter: 2025Q1

REPORT INFORMATION
  Report Type: Spontaneous
  Country: US (occurrence: US)
  Receive Date: 20230922
  Receipt Date: 20250313
  Transmission Date: 20250409
  Serious: Yes (Other)
  Sender: SANOFI AVENTIS
  Company Number: US-SA-SAC20230915000494

PATIENT
  Age: 34 Year
  Sex: Male

DRUGS (7)
  1. DUPIXENT [Suspect]
     Active Substance: DUPILUMAB
     Indication: Asthma
     Dosage: 300 MG, QOW
     Route: 058
     Dates: start: 20230624
  2. APAP [Concomitant]
     Active Substance: ACETAMINOPHEN
  3. CODEINE [Concomitant]
     Active Substance: CODEINE
  4. CEPHALEXIN [Concomitant]
     Active Substance: CEPHALEXIN
  5. FLOVENT HFA [Concomitant]
     Active Substance: FLUTICASONE PROPIONATE
  6. MUPIROCIN [Concomitant]
     Active Substance: MUPIROCIN
  7. TREMFYA [Concomitant]
     Active Substance: GUSELKUMAB

REACTIONS (6)
  - Choking [Unknown]
  - Impaired quality of life [Not Recovered/Not Resolved]
  - Asthma [Not Recovered/Not Resolved]
  - Injection site pain [Unknown]
  - Injection site swelling [Unknown]
  - Drug ineffective [Unknown]

NARRATIVE: CASE EVENT DATE: 20230101
